FAERS Safety Report 9113231 (Version 1)
Quarter: 2013Q1

REPORT INFORMATION
  Report Type: Spontaneous
  Country: US (occurrence: US)
  Receive Date: 20130211
  Receipt Date: 20130211
  Transmission Date: 20140127
  Serious: Yes (Other)
  Sender: FDA-Public Use
  Company Number: US-ELI_LILLY_AND_COMPANY-US201302000376

PATIENT
  Sex: Male

DRUGS (2)
  1. HUMULIN REGULAR [Suspect]
  2. PRADAXA [Concomitant]

REACTIONS (1)
  - Cerebrovascular accident [Unknown]
